FAERS Safety Report 6970253-4 (Version None)
Quarter: 2010Q3

REPORT INFORMATION
  Report Type: 
  Country: None (occurrence: None)
  Receive Date: 20100908
  Receipt Date: 20100825
  Transmission Date: 20110219
  Serious: Yes (Other)
  Sender: FDA-Public Use
  Company Number: PHHY2010US55307

PATIENT
  Sex: Male
  Weight: 97.45 kg

DRUGS (2)
  1. VALTURNA [Suspect]
     Indication: HYPERTENSION
     Dosage: 150/160 MG, DAILY
     Route: 048
     Dates: start: 20100806, end: 20100806
  2. CHLORMADINONE ACETATE TAB [Concomitant]
     Dosage: UNK
     Dates: start: 20100604, end: 20100803

REACTIONS (6)
  - DEHYDRATION [None]
  - DIZZINESS [None]
  - FALL [None]
  - HYPOTENSION [None]
  - LOSS OF CONSCIOUSNESS [None]
  - SYNCOPE [None]
